FAERS Safety Report 18057358 (Version 1)
Quarter: 2020Q3

REPORT INFORMATION
  Report Type: Spontaneous
  Country: IT (occurrence: IT)
  Receive Date: 20200722
  Receipt Date: 20200722
  Transmission Date: 20201103
  Serious: Yes (Hospitalization)
  Sender: FDA-Public Use
  Company Number: NVSC2020IT199215

PATIENT
  Age: 54 Year
  Sex: Female

DRUGS (1)
  1. AFINITOR [Suspect]
     Active Substance: EVEROLIMUS
     Indication: METAPLASTIC BREAST CARCINOMA
     Dosage: 10 MG, QD
     Route: 048
     Dates: start: 20170515

REACTIONS (4)
  - SARS-CoV-2 antibody test negative [Recovered/Resolved]
  - Interstitial lung disease [Recovered/Resolved]
  - Pyrexia [Recovered/Resolved]
  - Arthralgia [Recovered/Resolved]

NARRATIVE: CASE EVENT DATE: 20200401
